FAERS Safety Report 10447347 (Version 1)
Quarter: 2014Q3

REPORT INFORMATION
  Report Type: Spontaneous
  Country: US (occurrence: US)
  Receive Date: 20140911
  Receipt Date: 20140911
  Transmission Date: 20150326
  Serious: No
  Sender: FDA-Public Use
  Company Number: US-GLAXOSMITHKLINE-A1070622A

PATIENT
  Age: 64 Year
  Sex: Male

DRUGS (17)
  1. OMEPRAZOLE. [Concomitant]
     Active Substance: OMEPRAZOLE
  2. EPIVIR HBV [Suspect]
     Active Substance: LAMIVUDINE
     Indication: CHRONIC HEPATITIS B
     Dosage: 150MG PER DAY
     Route: 048
     Dates: start: 2000
  3. CENTRUM SILVER [Concomitant]
     Active Substance: VITAMINS
  4. FISH OIL [Concomitant]
     Active Substance: FISH OIL
  5. ESCITALOPRAM [Concomitant]
     Active Substance: ESCITALOPRAM OXALATE
  6. CLONAZEPAM. [Concomitant]
     Active Substance: CLONAZEPAM
  7. MAGNESIUM [Concomitant]
     Active Substance: MAGNESIUM
  8. TRAZODONE [Concomitant]
     Active Substance: TRAZODONE HYDROCHLORIDE
  9. HUMULIN NOS [Concomitant]
     Active Substance: INSULIN HUMAN
  10. OXYCODONE [Concomitant]
     Active Substance: OXYCODONE
  11. QUETIAPINE [Concomitant]
     Active Substance: QUETIAPINE
  12. HYTRIN [Concomitant]
     Active Substance: TERAZOSIN HYDROCHLORIDE
  13. ATORVASTATIN [Concomitant]
     Active Substance: ATORVASTATIN
  14. TACROLIMUS. [Concomitant]
     Active Substance: TACROLIMUS
  15. LISINOPRIL. [Concomitant]
     Active Substance: LISINOPRIL
  16. MYCOPHENOLATE [Concomitant]
     Active Substance: MYCOPHENOLIC ACID
  17. LEVOXYL [Concomitant]
     Active Substance: LEVOTHYROXINE SODIUM

REACTIONS (1)
  - Immunosuppressant drug level increased [Not Recovered/Not Resolved]

NARRATIVE: CASE EVENT DATE: 2013
